FAERS Safety Report 9137926 (Version 1)
Quarter: 2013Q1

REPORT INFORMATION
  Report Type: Spontaneous
  Country: US (occurrence: US)
  Receive Date: 20130304
  Receipt Date: 20130304
  Transmission Date: 20140127
  Serious: No
  Sender: FDA-Public Use
  Company Number: US-BAYER-2013-026834

PATIENT
  Age: 61 Year
  Sex: Male
  Weight: 172 kg

DRUGS (3)
  1. ALEVE LIQUID GELS [Suspect]
     Dosage: 1 DF, BID
     Route: 048
     Dates: start: 201301
  2. ALEVE CAPLET/TABLET,MIDOL EXTENDED RELIEF CAPLET [Suspect]
     Dosage: 1 DF, BID
     Route: 048
  3. MULTIVITAMIN [Concomitant]

REACTIONS (2)
  - Incorrect drug administration duration [None]
  - Drug ineffective [None]
